FAERS Safety Report 4432417-3 (Version None)
Quarter: 2004Q3

REPORT INFORMATION
  Report Type: 
  Country: None (occurrence: None)
  Receive Date: 20040825
  Receipt Date: 20040823
  Transmission Date: 20050211
  Serious: Yes (Other)
  Sender: FDA-Public Use
  Company Number: 20040016052

PATIENT
  Age: 39 Year
  Sex: Female
  Weight: 84 kg

DRUGS (4)
  1. QUILONUM RETARD [Suspect]
     Dosage: 10TAB SINGLE DOSE
     Route: 048
  2. DOMINAL FORTE [Suspect]
     Dosage: 39TAB SINGLE DOSE
     Route: 048
  3. EQUILIBRIN [Suspect]
     Dosage: 4TAB SINGLE DOSE
     Route: 048
  4. TAVOR [Suspect]
     Dosage: 5TAB SINGLE DOSE
     Route: 048

REACTIONS (4)
  - INTENTIONAL OVERDOSE [None]
  - MULTIPLE DRUG OVERDOSE INTENTIONAL [None]
  - NO ADVERSE EFFECT [None]
  - SUICIDE ATTEMPT [None]
